FAERS Safety Report 8902307 (Version 3)
Quarter: 2013Q1

REPORT INFORMATION
  Report Type: Spontaneous
  Country: TR (occurrence: TR)
  Receive Date: 20121112
  Receipt Date: 20130104
  Transmission Date: 20140127
  Serious: Yes (Death, Hospitalization)
  Sender: FDA-Public Use
  Company Number: TR-JNJFOC-20121104784

PATIENT
  Age: 70 Year
  Sex: Male
  Weight: 80 kg

DRUGS (4)
  1. XARELTO [Suspect]
     Indication: CEREBROVASCULAR ACCIDENT PROPHYLAXIS
     Route: 048
     Dates: start: 20121014, end: 20121020
  2. XARELTO [Suspect]
     Indication: ATRIAL FIBRILLATION
     Route: 048
     Dates: start: 20121014, end: 20121020
  3. ACETYLSALICYLIC ACID [Concomitant]
     Route: 065
  4. DIGOXIN [Concomitant]
     Route: 065

REACTIONS (9)
  - Cardio-respiratory arrest [Fatal]
  - Bicytopenia [Recovering/Resolving]
  - Hepatic enzyme increased [Recovering/Resolving]
  - Thrombocytopenia [Not Recovered/Not Resolved]
  - Pyrexia [Recovering/Resolving]
  - Leukopenia [Recovering/Resolving]
  - Rash [Recovering/Resolving]
  - Bone marrow failure [Unknown]
  - Agranulocytosis [Unknown]
